FAERS Safety Report 6879450-X (Version None)
Quarter: 2010Q3

REPORT INFORMATION
  Report Type: 
  Country: None (occurrence: None)
  Receive Date: 20100728
  Receipt Date: 20100723
  Transmission Date: 20110219
  Serious: Yes (Hospitalization)
  Sender: FDA-Public Use
  Company Number: BE-WYE-G06462510

PATIENT
  Age: 87 Year
  Sex: Female

DRUGS (11)
  1. TYGACIL [Suspect]
     Indication: ERYSIPELAS
     Dosage: 50 MG TWICE DAILY FOR 1 DAY, FOLLOWED BY 50 MG PER DAY SUBSEQUENTLY
     Route: 042
     Dates: start: 20100601, end: 20100615
  2. AMLOR [Concomitant]
     Indication: HYPERTENSION
     Route: 048
  3. AMLOR [Concomitant]
     Indication: ANGINA PECTORIS
  4. GLUCOPHAGE [Concomitant]
     Route: 048
  5. ZOCOR [Concomitant]
     Indication: HYPERCHOLESTEROLAEMIA
     Route: 048
  6. ASAFLOW [Concomitant]
     Route: 048
  7. PLAVIX [Concomitant]
     Route: 048
  8. EMCONCOR [Concomitant]
     Indication: HYPERTENSION
     Route: 048
  9. EMCONCOR [Concomitant]
     Indication: ANGINA PECTORIS
  10. PERINDOPRIL ERBUMINE [Concomitant]
     Indication: HYPERTENSION
     Route: 048
  11. PERINDOPRIL ERBUMINE [Concomitant]
     Indication: CARDIAC FAILURE

REACTIONS (2)
  - HEPATITIS TOXIC [None]
  - JAUNDICE [None]
